FAERS Safety Report 14577784 (Version 3)
Quarter: 2018Q1

REPORT INFORMATION
  Report Type: Spontaneous
  Country: US (occurrence: US)
  Receive Date: 20180227
  Receipt Date: 20180330
  Transmission Date: 20180509
  Serious: No
  Sender: FDA-Public Use
  Company Number: US-GLAXOSMITHKLINE-US2018GSK031021

PATIENT
  Sex: Female
  Weight: 52.15 kg

DRUGS (4)
  1. SUMATRIPTAN (SUMATRIPTAN SUCCINATE) TABLET [Suspect]
     Active Substance: SUMATRIPTAN
     Indication: HEADACHE
     Dosage: 2 DF, (MAX 2 TABLETS PER WEEK)
     Dates: start: 1995
  2. SUMATRIPTAN (SUMATRIPTAN SUCCINATE) SOLUTION FOR INJECTION IN PRE-FILL [Suspect]
     Active Substance: SUMATRIPTAN
     Indication: HEADACHE
     Dosage: 6 MG, (MAX 2 INJECTIONS PER WEEK)
  3. AMITRIPTYLINE [Concomitant]
     Active Substance: AMITRIPTYLINE
     Indication: HEADACHE
     Dosage: 10 MG, QD
     Dates: start: 2011
  4. PANTOPRAZOLE [Concomitant]
     Active Substance: PANTOPRAZOLE
     Indication: GASTROOESOPHAGEAL REFLUX DISEASE
     Dosage: 40 MG, QD

REACTIONS (9)
  - Device use issue [Unknown]
  - Nausea [Unknown]
  - Discomfort [Unknown]
  - Hypoaesthesia [Unknown]
  - Injection site pain [Unknown]
  - Product quality issue [Unknown]
  - Feeling abnormal [Unknown]
  - Dry mouth [Unknown]
  - Feeling drunk [Unknown]
